FAERS Safety Report 17710648 (Version 4)
Quarter: 2020Q2

REPORT INFORMATION
  Report Type: Spontaneous
  Country: US (occurrence: US)
  Receive Date: 20200427
  Receipt Date: 20200524
  Transmission Date: 20200714
  Serious: Yes (Hospitalization)
  Sender: FDA-Public Use
  Company Number: NVSC2020US110451

PATIENT
  Sex: Female

DRUGS (3)
  1. TASIGNA [Suspect]
     Active Substance: NILOTINIB
     Indication: CHRONIC MYELOID LEUKAEMIA
     Dosage: 300 MG, BID
     Route: 048
     Dates: start: 20180712
  2. TASIGNA [Suspect]
     Active Substance: NILOTINIB
     Indication: WHITE BLOOD CELL COUNT INCREASED
     Dosage: 300 MG, BID
     Route: 048
     Dates: start: 20180711
  3. OXYCODONE [Concomitant]
     Active Substance: OXYCODONE
     Indication: PAIN
     Dosage: UNK
     Route: 065

REACTIONS (11)
  - Back pain [Unknown]
  - Chest pain [Unknown]
  - Cardiac disorder [Unknown]
  - Pancreatitis [Not Recovered/Not Resolved]
  - Eructation [Unknown]
  - Blood magnesium decreased [Unknown]
  - Constipation [Unknown]
  - Blood potassium increased [Unknown]
  - Flatulence [Unknown]
  - Differential white blood cell count normal [Unknown]
  - Pain in extremity [Unknown]
